FAERS Safety Report 8304272-2 (Version None)
Quarter: 2012Q2

REPORT INFORMATION
  Report Type: 
  Country: None (occurrence: None)
  Receive Date: 20120423
  Receipt Date: 20120417
  Transmission Date: 20120825
  Serious: Yes (Hospitalization)
  Sender: FDA-Public Use
  Company Number: PHEH2012US008236

PATIENT
  Sex: Female
  Weight: 81.633 kg

DRUGS (3)
  1. GILENYA [Suspect]
     Indication: MULTIPLE SCLEROSIS
     Dosage: 0.5 MG, QD
     Route: 048
     Dates: start: 20120209, end: 20120314
  2. CLOZAPINE [Concomitant]
  3. GILENYA [Suspect]
     Dosage: 0.5 MG, BID
     Route: 048

REACTIONS (4)
  - DIZZINESS [None]
  - CONVULSION [None]
  - LOSS OF CONSCIOUSNESS [None]
  - OVERDOSE [None]
